FAERS Safety Report 9200297 (Version 1)
Quarter: 2013Q1

REPORT INFORMATION
  Report Type: Spontaneous
  Country: CA (occurrence: CA)
  Receive Date: 20130329
  Receipt Date: 20130329
  Transmission Date: 20140127
  Serious: Yes (Other)
  Sender: FDA-Public Use
  Company Number: CHPA2013CA005315

PATIENT
  Sex: Female

DRUGS (1)
  1. HABITROL [Suspect]
     Dosage: 7 MG, QD
     Route: 062
     Dates: start: 20130108

REACTIONS (1)
  - Rash erythematous [Not Recovered/Not Resolved]
